FAERS Safety Report 4923688-5 (Version None)
Quarter: 2006Q1

REPORT INFORMATION
  Report Type: 
  Country: None (occurrence: None)
  Receive Date: 20060227
  Receipt Date: 20050707
  Transmission Date: 20060701
  Serious: Yes (Hospitalization)
  Sender: FDA-Public Use
  Company Number: US-MERCK-0507USA01266

PATIENT
  Age: 61 Year
  Sex: Male
  Weight: 120 kg

DRUGS (5)
  1. VIOXX [Suspect]
     Indication: ARTHRITIS
     Route: 048
     Dates: start: 20000101, end: 20020701
  2. CARDURA [Concomitant]
     Route: 065
  3. BUSPAR [Concomitant]
     Route: 065
  4. HUMULIN [Concomitant]
     Route: 065
  5. BEXTRA [Concomitant]
     Route: 065
     Dates: start: 20020101

REACTIONS (1)
  - MYOCARDIAL INFARCTION [None]
